FAERS Safety Report 9872299 (Version 1)
Quarter: 2014Q1

REPORT INFORMATION
  Report Type: Spontaneous
  Country: FR (occurrence: FR)
  Receive Date: 20140205
  Receipt Date: 20140205
  Transmission Date: 20141002
  Serious: Yes (Other)
  Sender: FDA-Public Use
  Company Number: FR-JNJFOC-20140116550

PATIENT
  Age: 60 Year
  Sex: Male

DRUGS (2)
  1. IMODIUM [Suspect]
     Route: 048
  2. IMODIUM [Suspect]
     Indication: GASTROENTERITIS VIRAL
     Dosage: 2 CAPSULES OF 2 MG
     Route: 048
     Dates: start: 20131230, end: 20131230

REACTIONS (1)
  - Intestinal obstruction [Recovered/Resolved]
